FAERS Safety Report 8299008-8 (Version None)
Quarter: 2012Q2

REPORT INFORMATION
  Report Type: 
  Country: None (occurrence: None)
  Receive Date: 20120419
  Receipt Date: 20120411
  Transmission Date: 20120825
  Serious: Yes (Other)
  Sender: FDA-Public Use
  Company Number: US-ABBOTT-12P-163-0924656-00

PATIENT
  Age: 62 Year
  Sex: Female

DRUGS (13)
  1. NORVASC [Suspect]
     Indication: HYPERTENSION
     Dosage: 10MG QHS
  2. POTASSIUM [Concomitant]
     Indication: MINERAL SUPPLEMENTATION
  3. CYMBALTA [Concomitant]
     Indication: DEPRESSION
     Dosage: QHS
  4. ARTHROTEC [Concomitant]
     Indication: RHEUMATOID ARTHRITIS
     Dosage: 75MG QAM
  5. TIZANIDINE HCL [Concomitant]
     Indication: MUSCLE RELAXANT THERAPY
  6. CYMBALTA [Concomitant]
     Indication: ANXIETY
  7. HUMIRA [Suspect]
     Indication: RHEUMATOID ARTHRITIS
     Dates: start: 20100401
  8. NEXIUM [Concomitant]
     Indication: GASTROOESOPHAGEAL REFLUX DISEASE
     Dosage: 40MG QAM
  9. REQUIP [Concomitant]
     Indication: PRODUCT USED FOR UNKNOWN INDICATION
     Dosage: 0.5MG QAM AND QHS
  10. LASIX [Concomitant]
     Indication: FLUID RETENTION
     Dosage: 40MG QAM, 20MG QPM
  11. ALENDRONATE SODIUM [Concomitant]
     Indication: OSTEOPOROSIS
  12. AMBIEN [Concomitant]
     Indication: INSOMNIA
     Dosage: 10MG QHS
  13. NEURONTIN [Concomitant]
     Indication: NEUROPATHY PERIPHERAL
     Dosage: 300MG 2 TAB QAM, 4 TAB QHS

REACTIONS (8)
  - BLINDNESS UNILATERAL [None]
  - BLOOD PRESSURE INCREASED [None]
  - CENTRAL NERVOUS SYSTEM LESION [None]
  - INJECTION SITE HAEMORRHAGE [None]
  - OPTIC ISCHAEMIC NEUROPATHY [None]
  - DEVICE MALFUNCTION [None]
  - INJECTION SITE PAIN [None]
  - TRANSIENT ISCHAEMIC ATTACK [None]
